FAERS Safety Report 9691169 (Version 2)
Quarter: 2013Q4

REPORT INFORMATION
  Report Type: Report from Study
  Country: AU (occurrence: AU)
  Receive Date: 20131115
  Receipt Date: 20131115
  Transmission Date: 20140711
  Serious: Yes (Hospitalization)
  Sender: FDA-Public Use
  Company Number: AU-ABBVIE-13P-008-1135664-00

PATIENT
  Age: 38 Year
  Sex: Female

DRUGS (19)
  1. HUMIRA [Suspect]
     Indication: SPONDYLITIS
     Route: 058
     Dates: start: 20110512
  2. PANADOL OSTEO [Concomitant]
     Indication: SPONDYLITIS
     Dates: start: 2008
  3. PANADOL OSTEO [Concomitant]
     Indication: MYALGIA
  4. PANADOL OSTEO [Concomitant]
     Indication: PAIN
  5. PREDNISOLONE [Concomitant]
     Indication: DIARRHOEA
     Route: 048
     Dates: start: 20110301, end: 20110318
  6. PREDNISOLONE [Concomitant]
     Indication: DIARRHOEA
     Route: 048
     Dates: start: 20110519, end: 20110522
  7. PREDNISOLONE [Concomitant]
     Indication: SPONDYLITIS
     Route: 048
     Dates: start: 20110523, end: 20110602
  8. PREDNISOLONE [Concomitant]
     Indication: GASTROENTERITIS
     Route: 048
     Dates: start: 20110603, end: 20110604
  9. PREDNISOLONE [Concomitant]
     Route: 048
     Dates: start: 20110605, end: 20120823
  10. PREDNISOLONE [Concomitant]
     Route: 048
     Dates: start: 20120823, end: 20120826
  11. PREDNISOLONE [Concomitant]
     Route: 048
     Dates: start: 20120827, end: 20121221
  12. PREDNISOLONE [Concomitant]
     Route: 048
     Dates: start: 20121220, end: 20121227
  13. PREDNISOLONE [Concomitant]
     Route: 048
     Dates: start: 20121227
  14. PREDNISOLONE [Concomitant]
     Route: 048
     Dates: start: 20130711, end: 20130714
  15. SULPHASALAZINE [Concomitant]
     Indication: SPONDYLITIS
     Dates: start: 20110301
  16. TRAMAL [Concomitant]
     Indication: SPONDYLITIS
     Dates: start: 2010
  17. MOBIC [Concomitant]
     Indication: SPONDYLITIS
     Dates: start: 20110310
  18. IMPLANON [Concomitant]
     Indication: CONTRACEPTION
     Dates: start: 20050406
  19. PANADIENE FORTE [Concomitant]
     Indication: SPONDYLITIS
     Route: 048
     Dates: start: 20130808

REACTIONS (1)
  - Spondyloarthropathy [Recovered/Resolved]
